FAERS Safety Report 7414180-7 (Version None)
Quarter: 2011Q2

REPORT INFORMATION
  Report Type: 
  Country: None (occurrence: None)
  Receive Date: 20110414
  Receipt Date: 20110412
  Transmission Date: 20111010
  Serious: Yes (Life-Threatening)
  Sender: FDA-Public Use
  Company Number: JP-PFIZER INC-2009217561

PATIENT
  Age: 56 Year
  Sex: Male
  Weight: 50 kg

DRUGS (4)
  1. EPLERENONE [Suspect]
     Dosage: 50 MG, 1X/DAY
     Route: 048
     Dates: start: 20090402, end: 20090405
  2. TS-1 [Concomitant]
     Dosage: UNK
     Route: 048
  3. VALSARTAN [Concomitant]
     Indication: HYPERTENSION
     Route: 048
     Dates: end: 20090405
  4. DICHLOTRIDE [Concomitant]
     Indication: HYPERTENSION
     Route: 048
     Dates: end: 20090405

REACTIONS (1)
  - LABILE BLOOD PRESSURE [None]
